FAERS Safety Report 9549817 (Version 2)
Quarter: 2013Q3

REPORT INFORMATION
  Report Type: Spontaneous
  Country: US (occurrence: US)
  Receive Date: 20130924
  Receipt Date: 20130924
  Transmission Date: 20140515
  Serious: No
  Sender: FDA-Public Use
  Company Number: US-009507513-1211USA007282

PATIENT
  Sex: Female

DRUGS (3)
  1. REBETOL [Suspect]
     Indication: HEPATITIS C
     Dosage: UNK
     Route: 048
     Dates: end: 20120409
  2. INTERFERON ALFA [Suspect]
     Indication: HEPATITIS C
     Dosage: UNK
     Dates: end: 20120409
  3. PEGINTRON [Suspect]
     Dosage: UNK
     Dates: start: 20110425, end: 201204

REACTIONS (2)
  - Exposure during pregnancy [Unknown]
  - No adverse event [Unknown]
